FAERS Safety Report 6131305-4 (Version None)
Quarter: 2009Q1

REPORT INFORMATION
  Report Type: 
  Country: None (occurrence: None)
  Receive Date: 20090325
  Receipt Date: 20070619
  Transmission Date: 20090719
  Serious: No
  Sender: FDA-Public Use
  Company Number: US-BRISTOL-MYERS SQUIBB COMPANY-14108104

PATIENT

DRUGS (2)
  1. ERBITUX [Suspect]
  2. IRINOTECAN HCL [Concomitant]

REACTIONS (1)
  - DIARRHOEA [None]
